APPROVED DRUG PRODUCT: CHLOROTRIANISENE
Active Ingredient: CHLOROTRIANISENE
Strength: 12MG
Dosage Form/Route: CAPSULE;ORAL
Application: A084652 | Product #001
Applicant: BANNER PHARMACAPS INC
Approved: Approved Prior to Jan 1, 1982 | RLD: No | RS: No | Type: DISCN